FAERS Safety Report 17911178 (Version 1)
Quarter: 2020Q2

REPORT INFORMATION
  Report Type: Spontaneous
  Country: DE (occurrence: DE)
  Receive Date: 20200618
  Receipt Date: 20200618
  Transmission Date: 20200714
  Serious: Yes (Life-Threatening, Hospitalization, Other)
  Sender: FDA-Public Use
  Company Number: DE-TEVA-2020-DE-1775144

PATIENT
  Age: 71 Year
  Sex: Female

DRUGS (23)
  1. CARBOPLATIN. [Suspect]
     Active Substance: CARBOPLATIN
     Dosage: 506 MG
     Route: 065
     Dates: start: 20190807, end: 20190807
  2. PACLITAXEL. [Suspect]
     Active Substance: PACLITAXEL
     Dosage: 175 MG/M2
     Route: 065
     Dates: start: 20191030, end: 20191030
  3. ONDANSETRON [Concomitant]
     Active Substance: ONDANSETRON
     Indication: CHEMOTHERAPY
     Dosage: 8 MG
     Route: 042
     Dates: start: 20190807
  4. CARBOPLATIN. [Suspect]
     Active Substance: CARBOPLATIN
     Dosage: 505 MG
     Route: 065
     Dates: start: 20190828, end: 20190828
  5. PACLITAXEL. [Suspect]
     Active Substance: PACLITAXEL
     Indication: OVARIAN CANCER
     Dosage: 175 MG/M2
     Route: 065
     Dates: start: 20190828, end: 20190828
  6. DURVALUMAB. [Suspect]
     Active Substance: DURVALUMAB
     Dosage: ROUTE OF ADMINISTRATION : INTRAVENOUS (NOT OTHERWISE SPECIFIED) .
     Route: 042
     Dates: start: 20190828, end: 20190828
  7. DURVALUMAB. [Suspect]
     Active Substance: DURVALUMAB
     Dosage: ROUTE OF ADMINISTRATION : INTRAVENOUS (NOT OTHERWISE SPECIFIED) .
     Route: 042
     Dates: start: 20190918, end: 20190918
  8. RAMIPRIL. [Concomitant]
     Active Substance: RAMIPRIL
     Indication: HYPERTENSION
     Dosage: ROUTE OF ADMINISTRATION : ORAL .
     Route: 048
     Dates: start: 20190715
  9. PACLITAXEL. [Suspect]
     Active Substance: PACLITAXEL
     Dosage: 175 MG/M2
     Route: 065
     Dates: start: 20191009, end: 20191009
  10. DURVALUMAB. [Suspect]
     Active Substance: DURVALUMAB
     Indication: OVARIAN CANCER
     Dosage: 22  ML
     Route: 042
     Dates: start: 20190909, end: 20191009
  11. CLEMASTINE FUMARATE. [Concomitant]
     Active Substance: CLEMASTINE FUMARATE
     Indication: CHEMOTHERAPY
     Dosage: 2 MG
     Route: 042
     Dates: start: 20190807
  12. OLAPARIB. [Suspect]
     Active Substance: OLAPARIB
     Indication: OVARIAN CANCER
     Route: 048
  13. MONO-EMBOLEX [Concomitant]
     Active Substance: CERTOPARIN SODIUM
     Indication: CHEMOTHERAPY
     Route: 058
     Dates: start: 20190705, end: 20190809
  14. PACLITAXEL. [Suspect]
     Active Substance: PACLITAXEL
     Dosage: 175 MG/M2
     Route: 065
     Dates: start: 20190807, end: 20190807
  15. DEXAMETHASON [Concomitant]
     Active Substance: DEXAMETHASONE
     Indication: CHEMOTHERAPY
     Dosage: 20MG
     Route: 042
     Dates: start: 20190807
  16. RAMIPRIL. [Concomitant]
     Active Substance: RAMIPRIL
     Indication: CHEMOTHERAPY
     Dosage: 50MG
     Route: 042
     Dates: start: 20190807
  17. BEVACIZUMAB. [Concomitant]
     Active Substance: BEVACIZUMAB
     Indication: OVARIAN CANCER
  18. CARBOPLATIN. [Suspect]
     Active Substance: CARBOPLATIN
     Dosage: 476 MG
     Route: 065
     Dates: start: 20191009, end: 20191009
  19. SIMVASTATIN. [Concomitant]
     Active Substance: SIMVASTATIN
     Indication: HYPERCHOLESTEROLAEMIA
     Dosage: 2 MG
     Route: 048
     Dates: start: 20180101
  20. CARBOPLATIN. [Suspect]
     Active Substance: CARBOPLATIN
     Indication: OVARIAN CANCER
     Dosage: 525 MG
     Route: 065
     Dates: start: 20190918, end: 20190918
  21. CARBOPLATIN. [Suspect]
     Active Substance: CARBOPLATIN
     Dosage: 461 MG
     Route: 065
     Dates: start: 20191030, end: 20191030
  22. PACLITAXEL. [Suspect]
     Active Substance: PACLITAXEL
     Dosage: 175 MG/M2
     Route: 065
     Dates: start: 20190918, end: 20190918
  23. DURVALUMAB. [Suspect]
     Active Substance: DURVALUMAB
     Dosage: ROUTE OF ADMINISTRATION : INTRAVENOUS (NOT OTHERWISE SPECIFIED) .
     Route: 042
     Dates: start: 20191030, end: 20191030

REACTIONS (1)
  - Fatigue [Recovered/Resolved]

NARRATIVE: CASE EVENT DATE: 20190810
